FAERS Safety Report 9905555 (Version 1)
Quarter: 2014Q1

REPORT INFORMATION
  Report Type: Spontaneous
  Country: ES (occurrence: ES)
  Receive Date: 20140218
  Receipt Date: 20140218
  Transmission Date: 20141002
  Serious: Yes (Hospitalization)
  Sender: FDA-Public Use
  Company Number: ES-GLAXOSMITHKLINE-B0962424A

PATIENT
  Age: 55 Year
  Sex: Female

DRUGS (3)
  1. VOTRIENT [Suspect]
     Indication: SARCOMA
     Dosage: 800MG PER DAY
     Route: 048
     Dates: start: 201212
  2. DOXORUBICIN [Concomitant]
  3. UNSPECIFIED TREATMENT [Concomitant]

REACTIONS (4)
  - Cardiac failure [Unknown]
  - Ejection fraction decreased [Recovered/Resolved]
  - Dyspnoea [Unknown]
  - Chest discomfort [Unknown]
